FAERS Safety Report 13847941 (Version 1)
Quarter: 2017Q3

REPORT INFORMATION
  Report Type: Spontaneous
  Country: US (occurrence: US)
  Receive Date: 20170808
  Receipt Date: 20170808
  Transmission Date: 20171127
  Serious: Yes (Death)
  Sender: FDA-Public Use
  Company Number: None

PATIENT
  Age: 21 Year
  Sex: Male

DRUGS (7)
  1. TUM KIDS [Concomitant]
  2. TOBI [Suspect]
     Active Substance: TOBRAMYCIN
     Indication: CYSTIC FIBROSIS
     Dosage: ?          OTHER FREQUENCY:INHALE;OTHER ROUTE:INHALE 1 VIAL VIA NEBULIZER?
     Route: 055
  3. BACLOFEN. [Concomitant]
     Active Substance: BACLOFEN
  4. XOPENEX [Concomitant]
     Active Substance: LEVALBUTEROL HYDROCHLORIDE
  5. SINGULAIR [Concomitant]
     Active Substance: MONTELUKAST SODIUM
  6. TOPAMAX [Concomitant]
     Active Substance: TOPIRAMATE
  7. ROBINUL [Concomitant]
     Active Substance: GLYCOPYRROLATE

REACTIONS (1)
  - Death [None]
